FAERS Safety Report 9553732 (Version 1)
Quarter: 2013Q3

REPORT INFORMATION
  Report Type: Spontaneous
  Country: CO (occurrence: CO)
  Receive Date: 20130925
  Receipt Date: 20130925
  Transmission Date: 20140515
  Serious: Yes (Disabling)
  Sender: FDA-Public Use
  Company Number: CO-JNJFOC-20130913289

PATIENT
  Age: 53 Year
  Sex: Female

DRUGS (5)
  1. RISPERDAL CONSTA [Suspect]
     Indication: SCHIZOAFFECTIVE DISORDER
     Route: 030
  2. RISPERDAL CONSTA [Suspect]
     Indication: SCHIZOAFFECTIVE DISORDER
     Route: 030
     Dates: start: 20130916
  3. VALPROIC ACID [Concomitant]
     Route: 065
  4. LOVASTATIN [Concomitant]
     Route: 065
  5. CAPTOPRIL [Concomitant]
     Route: 065

REACTIONS (2)
  - Abasia [Not Recovered/Not Resolved]
  - Rash erythematous [Not Recovered/Not Resolved]
